FAERS Safety Report 23984383 (Version 1)
Quarter: 2024Q2

REPORT INFORMATION
  Report Type: Other
  Country: CN (occurrence: CN)
  Receive Date: 20240618
  Receipt Date: 20240618
  Transmission Date: 20240716
  Serious: Yes (Hospitalization)
  Sender: FDA-Public Use
  Company Number: CN-ALVOGEN-2024094846

PATIENT
  Sex: Female

DRUGS (10)
  1. DEXAMETHASONE [Suspect]
     Active Substance: DEXAMETHASONE
     Indication: Primary amyloidosis
     Dosage: 4 CYCLES ?VD REGIMEN
  2. DEXAMETHASONE [Suspect]
     Active Substance: DEXAMETHASONE
     Indication: Primary amyloidosis
     Dosage: 2 CYCLES ?VCD REGIMEN
  3. DEXAMETHASONE [Suspect]
     Active Substance: DEXAMETHASONE
     Indication: Primary amyloidosis
     Dosage: WEEKLY?SDD REGIMEN
  4. SELINEXOR [Suspect]
     Active Substance: SELINEXOR
     Indication: Primary amyloidosis
     Dosage: SDD REGIMEN
     Route: 048
  5. SELINEXOR [Suspect]
     Active Substance: SELINEXOR
     Indication: Primary amyloidosis
     Dosage: DOSE DEDUCTION STARTING ON CYCLE 3?SDD REGIMEN
  6. SELINEXOR [Suspect]
     Active Substance: SELINEXOR
     Indication: Primary amyloidosis
     Dosage: FURTHER DOSE REDUCTION?SDD REGIMEN
  7. DARATUMUMAB [Suspect]
     Active Substance: DARATUMUMAB
     Indication: Primary amyloidosis
     Dosage: ONCE A WEEK FOR 4 WEEKS, AND EVERY OTHER WEEK FOR TWO DOSES, FOLLOWED BY MONTHLY ADMINISTRATION
     Route: 042
  8. BORTEZOMIB [Suspect]
     Active Substance: BORTEZOMIB
     Indication: Primary amyloidosis
     Dosage: 4 CYCLES ?VD REGIMEN
  9. BORTEZOMIB [Suspect]
     Active Substance: BORTEZOMIB
     Indication: Primary amyloidosis
     Dosage: 2 CYCLES ?VCD REGIMEN
  10. CYCLOPHOSPHAMIDE [Suspect]
     Active Substance: CYCLOPHOSPHAMIDE
     Indication: Primary amyloidosis
     Dosage: 2 CYCLES?VCD REGIMEN

REACTIONS (12)
  - Thrombocytopenia [Unknown]
  - Toxicity to various agents [Unknown]
  - Dyspepsia [Unknown]
  - Vomiting [Unknown]
  - Early satiety [Unknown]
  - Weight decreased [Unknown]
  - Fatigue [Unknown]
  - Decreased appetite [Unknown]
  - Anaemia [Unknown]
  - Vision blurred [Unknown]
  - Nausea [Unknown]
  - Drug intolerance [Unknown]
